FAERS Safety Report 9649325 (Version 2)
Quarter: 2013Q4

REPORT INFORMATION
  Report Type: Report from Study
  Country: AU (occurrence: AU)
  Receive Date: 20131028
  Receipt Date: 20131104
  Transmission Date: 20140711
  Serious: Yes (Death)
  Sender: FDA-Public Use
  Company Number: AU-PFIZER INC-2013303422

PATIENT
  Age: 14 Year
  Sex: Female

DRUGS (1)
  1. CRIZOTINIB [Suspect]
     Indication: LYMPHOMA
     Dosage: 250 MG, UNK

REACTIONS (1)
  - Death [Fatal]
